FAERS Safety Report 5761042-7 (Version None)
Quarter: 2008Q2

REPORT INFORMATION
  Report Type: 
  Country: None (occurrence: None)
  Receive Date: 20080606
  Receipt Date: 20070615
  Transmission Date: 20081010
  Serious: No
  Sender: FDA-Public Use
  Company Number: US-ASTRAZENECA-2007UW14543

PATIENT
  Age: 37 Year
  Sex: Female
  Weight: 176.4 kg

DRUGS (4)
  1. PRILOSEC [Suspect]
     Indication: GASTROOESOPHAGEAL REFLUX DISEASE
     Route: 048
     Dates: start: 19910101
  2. XANAX [Concomitant]
  3. PROZAC [Concomitant]
  4. ZOLOFT [Concomitant]

REACTIONS (2)
  - VITAMIN B12 DEFICIENCY [None]
  - WEIGHT DECREASED [None]
